FAERS Safety Report 9501545 (Version 1)
Quarter: 2013Q3

REPORT INFORMATION
  Report Type: Spontaneous
  Country: FR (occurrence: FR)
  Receive Date: 20130905
  Receipt Date: 20130905
  Transmission Date: 20140515
  Serious: Yes (Hospitalization)
  Sender: FDA-Public Use
  Company Number: FR-WATSON-2013-15728

PATIENT
  Age: 11 Year
  Sex: Female

DRUGS (5)
  1. LEVETIRACETAM (UNKNOWN) [Suspect]
     Indication: CONVULSION
     Dosage: 1500 MG, DAILY
     Route: 048
     Dates: start: 20130621, end: 20130711
  2. METRONIDAZOLE [Suspect]
     Indication: SINUSITIS
     Dosage: 1200 MG, DAILY
     Route: 042
     Dates: start: 20130622, end: 20130711
  3. CEFOTAXIME PANPHARMA [Suspect]
     Indication: EMPYEMA
     Dosage: 8 G, UNK
     Route: 042
     Dates: start: 20130620, end: 20130711
  4. BUDESONIDE [Concomitant]
     Indication: PRODUCT USED FOR UNKNOWN INDICATION
     Dosage: UNK, UNKNOWN
     Route: 065
  5. DAFALGAN [Concomitant]
     Indication: PRODUCT USED FOR UNKNOWN INDICATION
     Dosage: UNK, UNKNOWN
     Route: 065

REACTIONS (2)
  - Agranulocytosis [Recovered/Resolved]
  - Leukopenia [Recovered/Resolved]
